FAERS Safety Report 5338307-6 (Version None)
Quarter: 2007Q2

REPORT INFORMATION
  Report Type: 
  Country: None (occurrence: None)
  Receive Date: 20070405
  Receipt Date: 20061110
  Transmission Date: 20071010
  Serious: No
  Sender: FDA-Public Use
  Company Number: US200611002146

PATIENT
  Age: 80 Year
  Sex: Female

DRUGS (8)
  1. CYMBALTA [Suspect]
     Indication: MAJOR DEPRESSION
     Dosage: 60 MG, DAILY (1/D), ORAL
     Route: 048
     Dates: start: 20061001
  2. FOSAMAX /ITA/ (ALENDRONATE SODIUM) [Concomitant]
  3. GLUCOSAMINE W/CHONDROITIN (CHONDROITIN SULFATE, GLUCOSAMINE) [Concomitant]
  4. FOLIC ACID [Concomitant]
  5. CALCIUM (CALCIUM) [Concomitant]
  6. IRON (IRON) [Concomitant]
  7. MULTIVITAMIN [Concomitant]
  8. HALCION /NET/ (TRIAZOLAM) [Concomitant]

REACTIONS (4)
  - BODY TEMPERATURE [None]
  - CONSTIPATION [None]
  - FATIGUE [None]
  - JOINT INJURY [None]
